FAERS Safety Report 4340532-8 (Version None)
Quarter: 2004Q2

REPORT INFORMATION
  Report Type: 
  Country: None (occurrence: None)
  Receive Date: 20040414
  Receipt Date: 20040329
  Transmission Date: 20050107
  Serious: Yes (Death)
  Sender: FDA-Public Use
  Company Number: DSA_24188_2004

PATIENT
  Age: 60 Year
  Sex: Male

DRUGS (2)
  1. ENALAPRIL MALEATE [Suspect]
     Indication: SCLERODERMA RENAL CRISIS
  2. CORTICOSTEROIDS [Suspect]

REACTIONS (6)
  - ARTHROPATHY [None]
  - LUNG DISORDER [None]
  - MICROANGIOPATHIC HAEMOLYTIC ANAEMIA [None]
  - OESOPHAGEAL DISORDER [None]
  - SCLERODERMA RENAL CRISIS [None]
  - SKIN DISORDER [None]
